FAERS Safety Report 4835915-3 (Version None)
Quarter: 2005Q4

REPORT INFORMATION
  Report Type: 
  Country: None (occurrence: None)
  Receive Date: 20051118
  Receipt Date: 20051110
  Transmission Date: 20060501
  Serious: Yes (Other)
  Sender: FDA-Public Use
  Company Number: 2005148850

PATIENT
  Age: 54 Year
  Sex: Male

DRUGS (2)
  1. NORVASC [Suspect]
     Indication: ILL-DEFINED DISORDER
     Dates: end: 20050101
  2. QUINAPRIL HCL [Suspect]
     Indication: ILL-DEFINED DISORDER
     Dosage: ABOUT 10 YEARS AGO

REACTIONS (4)
  - DIZZINESS [None]
  - GLUCOSE TOLERANCE IMPAIRED [None]
  - JOINT SWELLING [None]
  - OEDEMA PERIPHERAL [None]
